FAERS Safety Report 8102324-3 (Version None)
Quarter: 2012Q1

REPORT INFORMATION
  Report Type: 
  Country: None (occurrence: None)
  Receive Date: 20120201
  Receipt Date: 20120125
  Transmission Date: 20120608
  Serious: Yes (Other)
  Sender: FDA-Public Use
  Company Number: US-PFIZER INC-2012021483

PATIENT
  Sex: Male

DRUGS (5)
  1. ALPRAZOLAM [Suspect]
     Dosage: 1X/DAY AND SOMETIMES AS NEEDED
  2. ALPRAZOLAM [Suspect]
     Dosage: 2 MG, UNK
  3. ACETAMINOPHEN AND HYDROCODONE BITARTRATE [Concomitant]
     Indication: PAIN
     Dosage: 10/500 MG,EVERY 6 HOURS AS NEEDED
  4. ALPRAZOLAM [Suspect]
     Indication: ANXIETY
     Dosage: 2 MG, 3X/DAY
     Dates: start: 20100101
  5. ALPRAZOLAM [Suspect]
     Dosage: UNK

REACTIONS (4)
  - INAPPROPRIATE SCHEDULE OF DRUG ADMINISTRATION [None]
  - PRODUCT TASTE ABNORMAL [None]
  - INTENTIONAL DRUG MISUSE [None]
  - CONVULSION [None]
